FAERS Safety Report 7009670-5 (Version None)
Quarter: 2010Q3

REPORT INFORMATION
  Report Type: 
  Country: None (occurrence: None)
  Receive Date: 20100923
  Receipt Date: 20100916
  Transmission Date: 20110219
  Serious: Yes (Life-Threatening)
  Sender: FDA-Public Use
  Company Number: HR-PFIZER INC-2010117349

PATIENT
  Age: 65 Year
  Sex: Female

DRUGS (4)
  1. SORTIS [Suspect]
     Dosage: UNK
     Dates: start: 20090901, end: 20091101
  2. ATORVASTATIN [Suspect]
     Dosage: UNK
     Dates: start: 20090101, end: 20090901
  3. TRAMADOL HYDROCHLORIDE AND ACETAMINOPHEN [Concomitant]
  4. IBRUPROFEN [Concomitant]
     Dosage: UNK

REACTIONS (6)
  - BLOOD CREATINE PHOSPHOKINASE INCREASED [None]
  - BLOOD LACTATE DEHYDROGENASE INCREASED [None]
  - GAMMA-GLUTAMYLTRANSFERASE INCREASED [None]
  - MYALGIA [None]
  - RHABDOMYOLYSIS [None]
  - TRANSAMINASES INCREASED [None]
